FAERS Safety Report 4514402-6 (Version None)
Quarter: 2004Q4

REPORT INFORMATION
  Report Type: 
  Country: None (occurrence: None)
  Receive Date: 20041124
  Receipt Date: 20041111
  Transmission Date: 20050328
  Serious: Yes (Other)
  Sender: FDA-Public Use
  Company Number: A0518015A

PATIENT
  Age: 57 Year
  Sex: Female
  Weight: 53.8873 kg

DRUGS (1)
  1. NICODERM CQ [Suspect]
     Indication: SMOKING CESSATION THERAPY
     Dosage: 21 MG/TRANSDERMAL
     Route: 062

REACTIONS (3)
  - DIZZINESS [None]
  - SYNCOPE [None]
  - VOMITING [None]
